FAERS Safety Report 7494511-2 (Version None)
Quarter: 2011Q2

REPORT INFORMATION
  Report Type: 
  Country: None (occurrence: None)
  Receive Date: 20110520
  Receipt Date: 20110506
  Transmission Date: 20111010
  Serious: Yes (Other)
  Sender: FDA-Public Use
  Company Number: PHHY2011JP40631

PATIENT
  Sex: Female
  Weight: 43 kg

DRUGS (10)
  1. GLUFAST [Concomitant]
     Dosage: 60 MG, UNK
     Route: 048
     Dates: start: 20080512
  2. MEVALOTIN [Concomitant]
     Dosage: 15 MG, UNK
     Route: 048
     Dates: start: 20080512
  3. LANTUS [Concomitant]
     Dosage: 8 IU, UNK
  4. VALSARTAN [Suspect]
     Dosage: 40 MG, QD
     Route: 048
     Dates: start: 20081219, end: 20091126
  5. LANTUS [Concomitant]
     Dosage: 7 IU, UNK
     Dates: start: 20080828
  6. LANTUS [Concomitant]
     Dosage: 10 IU, UNK
  7. AMLODIPINE BESYLATE [Concomitant]
     Indication: HYPERTENSION
     Dosage: 5 MG, UNK
     Route: 048
     Dates: start: 20080512
  8. VALSARTAN [Suspect]
     Indication: HYPERTENSION
     Dosage: 20 MG, QD
     Route: 048
     Dates: start: 20080828, end: 20081218
  9. VALSARTAN [Suspect]
     Dosage: 80 MG, DAILY
     Route: 048
     Dates: start: 20091127
  10. LANTUS [Concomitant]
     Dosage: 14 IU, UNK

REACTIONS (2)
  - DIABETES MELLITUS INADEQUATE CONTROL [None]
  - LIPID METABOLISM DISORDER [None]
